FAERS Safety Report 6052700-8 (Version None)
Quarter: 2009Q1

REPORT INFORMATION
  Report Type: 
  Country: None (occurrence: None)
  Receive Date: 20090127
  Receipt Date: 20090119
  Transmission Date: 20090719
  Serious: Yes (Hospitalization)
  Sender: FDA-Public Use
  Company Number: US-ABBOTT-09P-163-0498693-00

PATIENT
  Sex: Female
  Weight: 53.572 kg

DRUGS (3)
  1. DEPAKOTE ER [Suspect]
     Indication: CONVULSION
     Dates: start: 20000101, end: 20081201
  2. DEPAKOTE [Suspect]
     Indication: CONVULSION
     Dates: start: 20081201
  3. MANY OTHER MEDICATIONS [Concomitant]
     Indication: DRUG USE FOR UNKNOWN INDICATION

REACTIONS (4)
  - ALOPECIA [None]
  - BRONCHITIS [None]
  - FALL [None]
  - WEIGHT DECREASED [None]
